FAERS Safety Report 12386939 (Version 1)
Quarter: 2016Q2

REPORT INFORMATION
  Report Type: Spontaneous
  Country: US (occurrence: US)
  Receive Date: 20160519
  Receipt Date: 20160519
  Transmission Date: 20160815
  Serious: Yes (Disabling, Other)
  Sender: FDA-Public Use
  Company Number: US-ELI_LILLY_AND_COMPANY-US201605005120

PATIENT
  Sex: Female

DRUGS (1)
  1. TRULICITY [Suspect]
     Active Substance: DULAGLUTIDE
     Indication: PRODUCT USED FOR UNKNOWN INDICATION
     Dosage: UNK, UNKNOWN
     Route: 065

REACTIONS (8)
  - Head injury [Unknown]
  - Furuncle [Unknown]
  - Blindness [Unknown]
  - Aphasia [Unknown]
  - Malaise [Unknown]
  - Auditory disorder [Unknown]
  - Musculoskeletal disorder [Unknown]
  - Fall [Unknown]
